FAERS Safety Report 4284701-4 (Version None)
Quarter: 2004Q1

REPORT INFORMATION
  Report Type: 
  Country: None (occurrence: None)
  Receive Date: 20040130
  Receipt Date: 20040120
  Transmission Date: 20041129
  Serious: Yes (Other)
  Sender: FDA-Public Use
  Company Number: 12480646

PATIENT
  Age: 47 Year
  Sex: Male

DRUGS (4)
  1. STAVUDINE [Suspect]
     Indication: HIV INFECTION
     Dates: start: 20000201, end: 20000101
  2. LAMIVUDINE [Suspect]
     Indication: HIV INFECTION
     Dates: start: 20000201, end: 20000101
  3. RITONAVIR [Suspect]
     Indication: HIV INFECTION
     Dates: start: 20000201
  4. INDINAVIR [Suspect]
     Indication: HIV INFECTION
     Dates: start: 20000201, end: 20000101

REACTIONS (16)
  - CONFUSIONAL STATE [None]
  - CONVULSION [None]
  - DYSURIA [None]
  - ELECTROENCEPHALOGRAM ABNORMAL [None]
  - ENCEPHALITIS [None]
  - HEPATIC ENZYME INCREASED [None]
  - HIV INFECTION [None]
  - LACTIC ACIDOSIS [None]
  - LYMPHOCYTE PERCENTAGE INCREASED [None]
  - MYALGIA [None]
  - NEUROPATHY PERIPHERAL [None]
  - NEUTROPHIL PERCENTAGE DECREASED [None]
  - PURPURA [None]
  - PYREXIA [None]
  - REBOUND EFFECT [None]
  - WEIGHT DECREASED [None]
